FAERS Safety Report 7692850-3 (Version None)
Quarter: 2011Q3

REPORT INFORMATION
  Report Type: 
  Country: None (occurrence: None)
  Receive Date: 20110819
  Receipt Date: 20110809
  Transmission Date: 20111222
  Serious: Yes (Hospitalization, Other)
  Sender: FDA-Public Use
  Company Number: US-JNJFOC-20110805098

PATIENT
  Age: 9 Month
  Sex: Female

DRUGS (1)
  1. DESITIN RAPID RELIEF CREAMY [Suspect]
     Indication: DERMATITIS DIAPER
     Dosage: AS NECESSARY
     Route: 061
     Dates: start: 20110726

REACTIONS (6)
  - DEHYDRATION [None]
  - DIARRHOEA [None]
  - RASH [None]
  - APPLICATION SITE VESICLES [None]
  - APPLICATION SITE ULCER [None]
  - HAEMORRHAGE [None]
